FAERS Safety Report 4724485-6 (Version None)
Quarter: 2005Q3

REPORT INFORMATION
  Report Type: 
  Country: None (occurrence: None)
  Receive Date: 20050721
  Receipt Date: 20050714
  Transmission Date: 20060218
  Serious: Yes (Hospitalization, Other)
  Sender: FDA-Public Use
  Company Number: 2005-06-1463

PATIENT
  Age: 79 Year
  Sex: Male
  Weight: 65 kg

DRUGS (2)
  1. PEG-INTRON [Suspect]
     Indication: HEPATITIS C
     Dosage: 80 MCG QW; SUBCUTANEOUS
     Route: 058
     Dates: start: 20050330, end: 20050608
  2. REBETOL [Suspect]
     Indication: HEPATITIS C
     Dosage: 400 MG; ORAL
     Route: 048
     Dates: start: 20050330, end: 20050608

REACTIONS (8)
  - CONDITION AGGRAVATED [None]
  - DERMATITIS EXFOLIATIVE [None]
  - EOSINOPHIL COUNT INCREASED [None]
  - ERYTHEMA [None]
  - OEDEMA [None]
  - PSORIASIS [None]
  - TOXIC EPIDERMAL NECROLYSIS [None]
  - TOXIC SKIN ERUPTION [None]
